FAERS Safety Report 17918666 (Version 1)
Quarter: 2020Q2

REPORT INFORMATION
  Report Type: Spontaneous
  Country: FR (occurrence: FR)
  Receive Date: 20200619
  Receipt Date: 20200619
  Transmission Date: 20200714
  Serious: Yes (Hospitalization)
  Sender: FDA-Public Use
  Company Number: NVSC2020FR172429

PATIENT
  Age: 82 Year
  Sex: Male
  Weight: 68 kg

DRUGS (2)
  1. NEORAL [Suspect]
     Active Substance: CYCLOSPORINE
     Indication: COLITIS
     Dosage: 50 MG, QD
     Route: 048
     Dates: start: 20200307
  2. SANDIMMUN [Suspect]
     Active Substance: CYCLOSPORINE
     Indication: COLITIS
     Dosage: 150 MG, QD
     Route: 042
     Dates: start: 20200227, end: 20200307

REACTIONS (1)
  - Acute kidney injury [Not Recovered/Not Resolved]

NARRATIVE: CASE EVENT DATE: 20200301
